FAERS Safety Report 5223905-0 (Version None)
Quarter: 2007Q1

REPORT INFORMATION
  Report Type: 
  Country: None (occurrence: None)
  Receive Date: 20070130
  Receipt Date: 20070122
  Transmission Date: 20070707
  Serious: Yes (Other)
  Sender: FDA-Public Use
  Company Number: 2006SE06655

PATIENT
  Age: 58 Year
  Sex: Female

DRUGS (5)
  1. TENORMIN [Suspect]
     Indication: HYPERTENSION
     Route: 048
     Dates: start: 20050518
  2. TRIOBE [Concomitant]
  3. LEVAXIN [Concomitant]
     Indication: HYPOTHYROIDISM
     Dates: start: 20030428
  4. INDERAL [Concomitant]
     Indication: PALPITATIONS
     Dates: start: 20050531
  5. TEMESTA [Concomitant]
     Indication: ANXIETY
     Dates: start: 20041029

REACTIONS (4)
  - DRY EYE [None]
  - FORMICATION [None]
  - HAIRY CELL LEUKAEMIA [None]
  - SINUS DISORDER [None]
